FAERS Safety Report 8446418 (Version 3)
Quarter: 2014Q1

REPORT INFORMATION
  Report Type: Spontaneous
  Country: DE (occurrence: DE)
  Receive Date: 20120307
  Receipt Date: 20140314
  Transmission Date: 20141002
  Serious: Yes (Hospitalization, Other)
  Sender: FDA-Public Use
  Company Number: DE-GILEAD-2012-0051742

PATIENT
  Age: 76 Year
  Sex: Male
  Weight: 57 kg

DRUGS (9)
  1. RANOLAZINE [Suspect]
     Indication: DIASTOLIC DYSFUNCTION
     Dosage: 375 MG, BID
     Route: 048
     Dates: start: 201103
  2. ASS [Concomitant]
     Indication: ARTERIOSCLEROSIS CORONARY ARTERY
     Dosage: 100 MG, UNK
     Route: 048
  3. ASS [Concomitant]
     Indication: PERIPHERAL ARTERIAL OCCLUSIVE DISEASE
  4. ALLOPURINOL [Concomitant]
     Indication: HYPERURICAEMIA
     Dosage: 150 MG, UNK
     Route: 048
  5. TORASEMIDE [Concomitant]
     Indication: DIASTOLIC DYSFUNCTION
     Dosage: 20 MG, UNK
     Route: 048
  6. TORASEMIDE [Concomitant]
     Indication: CARDIAC FAILURE
  7. ENALAPRIL [Concomitant]
     Indication: CARDIAC FAILURE
     Dosage: 10 MG, UNK
     Route: 048
  8. ENALAPRIL [Concomitant]
     Indication: DIASTOLIC DYSFUNCTION
  9. VIANI [Concomitant]
     Indication: CHRONIC OBSTRUCTIVE PULMONARY DISEASE
     Dosage: 2 UNK, BID
     Route: 055

REACTIONS (4)
  - Renal failure acute [Unknown]
  - Lipids increased [Unknown]
  - Proteinuria [Unknown]
  - Blood creatinine increased [Unknown]
